FAERS Safety Report 7012192-9 (Version None)
Quarter: 2010Q3

REPORT INFORMATION
  Report Type: 
  Country: None (occurrence: None)
  Receive Date: 20100922
  Receipt Date: 20100922
  Transmission Date: 20110219
  Serious: Yes (Disabling)
  Sender: FDA-Public Use
  Company Number: None

PATIENT
  Sex: Male
  Weight: 145.151 kg

DRUGS (2)
  1. GEODON [Suspect]
     Indication: MENTAL DISORDER
     Dosage: 80 MG 1XD 2 CAPS MOUTH
     Route: 048
     Dates: start: 20100701
  2. REMICADE [Suspect]
     Dosage: 1X - 4 WKS IV
     Route: 042

REACTIONS (5)
  - FEELING ABNORMAL [None]
  - HEADACHE [None]
  - MUSCLE TWITCHING [None]
  - MUSCULAR WEAKNESS [None]
  - TREMOR [None]
